FAERS Safety Report 8819733 (Version 1)
Quarter: 2012Q4

REPORT INFORMATION
  Report Type: 
  Country: US (occurrence: US)
  Receive Date: 20121001
  Receipt Date: 20121001
  Transmission Date: 20130627
  Serious: Yes (Other)
  Sender: FDA-Public Use
  Company Number: US-ROCHE-1124251

PATIENT
  Sex: Female

DRUGS (5)
  1. HERCEPTIN [Suspect]
     Indication: BREAST CANCER METASTATIC
     Route: 042
     Dates: start: 199812
  2. CAPECITABINE [Suspect]
     Indication: BREAST CANCER METASTATIC
     Route: 065
  3. TAXOL [Concomitant]
  4. GEMZAR [Concomitant]
     Route: 065
  5. NAVELBINE [Concomitant]

REACTIONS (3)
  - Cough [Unknown]
  - Dyspnoea [Unknown]
  - Pain in extremity [Unknown]
